FAERS Safety Report 8166740-6 (Version None)
Quarter: 2012Q1

REPORT INFORMATION
  Report Type: 
  Country: None (occurrence: None)
  Receive Date: 20120227
  Receipt Date: 20120216
  Transmission Date: 20120608
  Serious: Yes (Other)
  Sender: FDA-Public Use
  Company Number: CA-ROCHE-1025310

PATIENT
  Sex: Male

DRUGS (7)
  1. SINGULAIR [Concomitant]
  2. SALMETEROL [Concomitant]
  3. ADVAIR DISKUS 100/50 [Concomitant]
  4. VENTOLIN [Concomitant]
  5. FLOVENT [Concomitant]
  6. PREDNISONE [Concomitant]
  7. XOLAIR [Suspect]
     Indication: ASTHMA
     Route: 058
     Dates: start: 20111026

REACTIONS (5)
  - RIB FRACTURE [None]
  - NASOPHARYNGITIS [None]
  - ARTHRALGIA [None]
  - HEADACHE [None]
  - HYPERTENSION [None]
